FAERS Safety Report 5750518-4 (Version None)
Quarter: 2008Q2

REPORT INFORMATION
  Report Type: 
  Country: None (occurrence: None)
  Receive Date: 20080523
  Receipt Date: 20080523
  Transmission Date: 20081010
  Serious: No
  Sender: FDA-Public Use
  Company Number: None

PATIENT
  Age: 53 Year
  Sex: Male
  Weight: 111.1313 kg

DRUGS (1)
  1. CYMBALTA [Suspect]
     Indication: DEPRESSION
     Dosage: 60MG  DAILY IN MORNING
     Dates: start: 20070530, end: 20080410

REACTIONS (2)
  - CONDITION AGGRAVATED [None]
  - DEPRESSION [None]
